FAERS Safety Report 9850289 (Version 4)
Quarter: 2014Q1

REPORT INFORMATION
  Report Type: Spontaneous
  Country: JP (occurrence: JP)
  Receive Date: 20140128
  Receipt Date: 20140317
  Transmission Date: 20141002
  Serious: Yes (Other)
  Sender: FDA-Public Use
  Company Number: JP-GLAXOSMITHKLINE-B0963148A

PATIENT
  Age: 62 Year
  Sex: Male

DRUGS (6)
  1. SERETIDE (50MCG/100MCG) [Suspect]
     Indication: COUGH
     Dosage: 100MCG TWICE PER DAY
     Route: 055
     Dates: start: 20130812
  2. SERETIDE (50MCG/250MCG) [Suspect]
     Indication: COUGH
     Dosage: 250MCG TWICE PER DAY
     Route: 055
     Dates: start: 20130520, end: 20130811
  3. ANTI-HYPERTENSIVE [Concomitant]
     Indication: HYPERTENSION
     Dosage: 1IUAX PER DAY
     Route: 048
  4. SODIUM BICARBONATE [Concomitant]
     Indication: PROPHYLAXIS
     Dosage: .766G THREE TIMES PER DAY
     Route: 048
  5. DIASTASE [Concomitant]
     Indication: PROPHYLAXIS
     Dosage: .233G THREE TIMES PER DAY
     Route: 048
  6. CHLORPHENIRAMINE MALEATE [Concomitant]
     Indication: RHINITIS ALLERGIC
     Dosage: .333G THREE TIMES PER DAY
     Route: 048

REACTIONS (1)
  - Fungal oesophagitis [Unknown]
